FAERS Safety Report 21966653 (Version 1)
Quarter: 2023Q1

REPORT INFORMATION
  Report Type: Spontaneous
  Country: FR (occurrence: FR)
  Receive Date: 20230208
  Receipt Date: 20230208
  Transmission Date: 20230418
  Serious: Yes (Hospitalization)
  Sender: FDA-Public Use
  Company Number: None

PATIENT
  Age: 87 Year
  Sex: Female
  Weight: 51.8 kg

DRUGS (4)
  1. VENLAFAXINE [Suspect]
     Active Substance: VENLAFAXINE HYDROCHLORIDE
     Indication: Product used for unknown indication
     Dosage: 1500 MG, QD(20 CAPSULE OF 75MG,1 IN MORNING AND NOON)
     Route: 048
     Dates: start: 20220801, end: 20220801
  2. HYDROXYZINE [Suspect]
     Active Substance: HYDROXYZINE HYDROCHLORIDE
     Indication: Product used for unknown indication
     Dosage: 11 TABLETS OF 25MG 0.5 TAB/MORNING 1 TAB/EVENING
     Route: 048
     Dates: start: 20220801, end: 20220801
  3. PYRIDOSTIGMINE [Concomitant]
     Active Substance: PYRIDOSTIGMINE
     Indication: Muscular weakness
     Dosage: 1 TAB AT 08:00 12:00 AM 1 TAB AT 04:00 08:00 PM
     Route: 048
  4. QUETIAPINE [Concomitant]
     Active Substance: QUETIAPINE
     Indication: Depression
     Dosage: 50 MILLIGRAM, MONTHLY,1 TABLET IN THE EVENING
     Route: 048

REACTIONS (3)
  - Toxicity to various agents [Recovered/Resolved]
  - Tonic clonic movements [Recovered/Resolved]
  - Intentional overdose [Unknown]

NARRATIVE: CASE EVENT DATE: 20220801
